FAERS Safety Report 21764141 (Version 2)
Quarter: 2022Q4

REPORT INFORMATION
  Report Type: Spontaneous
  Country: US (occurrence: US)
  Receive Date: 20221222
  Receipt Date: 20221226
  Transmission Date: 20230112
  Serious: No
  Sender: FDA-Public Use
  Company Number: US-ELI_LILLY_AND_COMPANY-US202212010046

PATIENT
  Sex: Male

DRUGS (1)
  1. TRULICITY [Suspect]
     Active Substance: DULAGLUTIDE
     Indication: Product used for unknown indication
     Dosage: 3.0 MG, UNKNOWN
     Route: 058
     Dates: start: 202209

REACTIONS (5)
  - Nausea [Unknown]
  - Blood glucose increased [Unknown]
  - Constipation [Unknown]
  - Drug ineffective [Unknown]
  - Injection site pruritus [Unknown]
